FAERS Safety Report 5990881-2 (Version None)
Quarter: 2008Q4

REPORT INFORMATION
  Report Type: 
  Country: None (occurrence: None)
  Receive Date: 20081211
  Receipt Date: 20081203
  Transmission Date: 20090506
  Serious: Yes (Hospitalization)
  Sender: FDA-Public Use
  Company Number: CZ-ABBOTT-08P-217-0490872-00

PATIENT
  Age: 8 Year
  Sex: Female

DRUGS (1)
  1. DEPAKENE [Suspect]
     Indication: PETIT MAL EPILEPSY
     Route: 048
     Dates: start: 20080601

REACTIONS (4)
  - ABDOMINAL PAIN [None]
  - LIPASE INCREASED [None]
  - LIVER FUNCTION TEST ABNORMAL [None]
  - VOMITING [None]
